FAERS Safety Report 16084133 (Version 1)
Quarter: 2019Q1

REPORT INFORMATION
  Report Type: Spontaneous
  Country: US (occurrence: US)
  Receive Date: 20190318
  Receipt Date: 20190318
  Transmission Date: 20190418
  Serious: No
  Sender: FDA-Public Use
  Company Number: US-PFIZER INC-2019111251

PATIENT
  Age: 75 Year
  Sex: Male
  Weight: 136.8 kg

DRUGS (2)
  1. CELEBREX [Suspect]
     Active Substance: CELECOXIB
     Indication: ARTHRITIS
     Dosage: 1 DF, DAILY (1 A DAY)
     Dates: end: 20190303
  2. HYDROCHLOROTHIAZIDE. [Concomitant]
     Active Substance: HYDROCHLOROTHIAZIDE
     Indication: HYPERTENSION
     Dosage: UNK

REACTIONS (2)
  - Visual impairment [Unknown]
  - Pain in extremity [Unknown]
